FAERS Safety Report 15944157 (Version 2)
Quarter: 2019Q1

REPORT INFORMATION
  Report Type: Spontaneous
  Country: FR (occurrence: FR)
  Receive Date: 20190211
  Receipt Date: 20190220
  Transmission Date: 20190417
  Serious: Yes (Other)
  Sender: FDA-Public Use
  Company Number: FR-SUN PHARMACEUTICAL INDUSTRIES LTD-2019RR-198745

PATIENT
  Age: 37 Year
  Sex: Female
  Weight: 64.7 kg

DRUGS (7)
  1. AMLODIPINE [Suspect]
     Active Substance: AMLODIPINE BESYLATE
     Indication: HYPERTENSION
     Dosage: 10 MILLIGRAM, DAILY
     Route: 048
     Dates: start: 20181122, end: 20181229
  2. BICARBONATE DE SODIUM [Concomitant]
     Active Substance: SODIUM BICARBONATE
     Indication: GASTROOESOPHAGEAL REFLUX PROPHYLAXIS
     Dosage: INCONNUE
     Route: 048
     Dates: start: 20181130
  3. ARANESP 50 MICROGRAMMES, SOLUTION INJECTABLE EN SERINGUE PREREMPLIE [Concomitant]
     Indication: ANAEMIA
     Dosage: 1 DOSAGE FORM 15 DAY
     Route: 058
     Dates: start: 20181127
  4. PARACETAMOL [Suspect]
     Active Substance: ACETAMINOPHEN
     Indication: PAIN
     Dosage: 3 GRAM
     Route: 048
  5. MOVICOL [Concomitant]
     Active Substance: POLYETHYLENE GLYCOL 3350\POTASSIUM CHLORIDE\SODIUM BICARBONATE\SODIUM CHLORIDE
     Indication: CONSTIPATION
     Dosage: 2 DOSAGE FORM, DAILY
     Route: 048
     Dates: start: 20131130
  6. ORACILLINE 1 000 000 UI, COMPRIME SECABLE [Suspect]
     Active Substance: PENICILLIN V
     Indication: PROPHYLAXIS
     Dosage: 1 DOSAGE FORM, DAILY
     Route: 048
     Dates: start: 20181129, end: 20181226
  7. ACIDE FOLIQUE [Suspect]
     Active Substance: FOLIC ACID
     Indication: ANAEMIA
     Dosage: 5 MILLIGRAM, DAILY
     Route: 048
     Dates: start: 20181130, end: 20181226

REACTIONS (2)
  - Hepatitis cholestatic [Recovering/Resolving]
  - Hepatitis [Recovering/Resolving]

NARRATIVE: CASE EVENT DATE: 20181219
